FAERS Safety Report 9692276 (Version 3)
Quarter: 2013Q4

REPORT INFORMATION
  Report Type: Spontaneous
  Country: US (occurrence: US)
  Receive Date: 20131118
  Receipt Date: 20131206
  Transmission Date: 20140711
  Serious: Yes (Disabling)
  Sender: FDA-Public Use
  Company Number: US-ROCHE-1292343

PATIENT
  Age: 72 Year
  Sex: Female

DRUGS (4)
  1. XELODA [Suspect]
     Indication: BREAST CANCER
     Dosage: 3 WEEKS ON 1 WEEK OFF
     Route: 048
  2. XELODA [Suspect]
     Dosage: 3 TABLETS AT MORNING, 2 TABLETS AT EVENING FOR 2 WEEKS AND THEN 2 WEEKS OFF.
     Route: 048
  3. XELODA [Suspect]
     Dosage: 3 TABLETS TWICE DAILY
     Route: 048
  4. XELODA [Suspect]
     Route: 048
     Dates: start: 20131011

REACTIONS (15)
  - Mucosal inflammation [Recovered/Resolved]
  - Conjunctivitis [Not Recovered/Not Resolved]
  - Palmar-plantar erythrodysaesthesia syndrome [Unknown]
  - Erythema [Unknown]
  - Local swelling [Unknown]
  - Erythema [Unknown]
  - Cheilitis [Unknown]
  - Vomiting [Unknown]
  - Diarrhoea [Unknown]
  - Fatigue [Unknown]
  - Eye discharge [Unknown]
  - Local swelling [Unknown]
  - Local swelling [Unknown]
  - Erythema [Unknown]
  - Erythema [Unknown]
